FAERS Safety Report 11247288 (Version 1)
Quarter: 2015Q3

REPORT INFORMATION
  Report Type: Spontaneous
  Country: FR (occurrence: FR)
  Receive Date: 20150708
  Receipt Date: 20150708
  Transmission Date: 20151125
  Serious: Yes (Hospitalization)
  Sender: FDA-Public Use
  Company Number: FR-PFIZER INC-2015223630

PATIENT
  Age: 44 Year
  Sex: Female

DRUGS (4)
  1. LAMALINE [Suspect]
     Active Substance: ACETAMINOPHEN\CAFFEINE\OPIUM
     Dosage: 25.6 G, SINGLE
     Route: 048
     Dates: start: 20140117, end: 20140117
  2. XANAX [Suspect]
     Active Substance: ALPRAZOLAM
     Dosage: 20 DF, SINGLE
     Route: 048
     Dates: start: 20140117, end: 20140117
  3. DIOALGO [Suspect]
     Active Substance: ACETAMINOPHEN\PROPOXYPHENE HYDROCHLORIDE
     Dosage: 1200 MG, SINGLE
     Route: 048
     Dates: start: 20140117, end: 20140117
  4. SEROPLEX [Suspect]
     Active Substance: ESCITALOPRAM OXALATE
     Dosage: } 100 MG, SINGLE
     Route: 048
     Dates: start: 20140117, end: 20140117

REACTIONS (4)
  - Toxicity to various agents [Recovered/Resolved]
  - Overdose [Unknown]
  - Somnolence [Unknown]
  - Suicide attempt [Unknown]

NARRATIVE: CASE EVENT DATE: 20140117
